FAERS Safety Report 8487817-1 (Version None)
Quarter: 2012Q3

REPORT INFORMATION
  Report Type: 
  Country: None (occurrence: None)
  Receive Date: 20120705
  Receipt Date: 20120625
  Transmission Date: 20120928
  Serious: No
  Sender: FDA-Public Use
  Company Number: US-TEVA-345129USA

PATIENT
  Sex: Female

DRUGS (3)
  1. ORPHENADRINE CITRATE [Concomitant]
  2. COPAXONE [Suspect]
     Indication: MULTIPLE SCLEROSIS
     Dates: start: 20111223
  3. NUCYNTA [Concomitant]

REACTIONS (3)
  - PRURITUS [None]
  - ERYTHEMA [None]
  - URTICARIA [None]
